FAERS Safety Report 6611306-X (Version None)
Quarter: 2010Q1

REPORT INFORMATION
  Report Type: 
  Country: None (occurrence: None)
  Receive Date: 20100301
  Receipt Date: 20100301
  Transmission Date: 20100710
  Serious: Yes (Other)
  Sender: FDA-Public Use
  Company Number: None

PATIENT
  Age: 60 Year
  Sex: Female
  Weight: 56.6996 kg

DRUGS (1)
  1. LISINOPRIL [Suspect]
     Indication: MYOCARDIAL INFARCTION
     Dosage: 40 MG DAILY PO
     Route: 048
     Dates: start: 20100125, end: 20100211

REACTIONS (1)
  - DRUG HYPERSENSITIVITY [None]
